FAERS Safety Report 18365877 (Version 1)
Quarter: 2020Q4

REPORT INFORMATION
  Report Type: Spontaneous
  Country: US (occurrence: US)
  Receive Date: 20201009
  Receipt Date: 20201009
  Transmission Date: 20210114
  Serious: Yes (Other)
  Sender: FDA-Public Use
  Company Number: None

PATIENT
  Age: 56 Year
  Sex: Female
  Weight: 125.9 kg

DRUGS (20)
  1. NAPROXEN. [Concomitant]
     Active Substance: NAPROXEN
  2. MELATONIN [Concomitant]
     Active Substance: MELATONIN
  3. FLUTICASONE. [Concomitant]
     Active Substance: FLUTICASONE
  4. PRAVASTATIN. [Concomitant]
     Active Substance: PRAVASTATIN
  5. SPIRIVA [Concomitant]
     Active Substance: TIOTROPIUM BROMIDE MONOHYDRATE
  6. AZELASTINE. [Concomitant]
     Active Substance: AZELASTINE HYDROCHLORIDE
  7. DULOXETINE. [Concomitant]
     Active Substance: DULOXETINE
  8. MONTELUKAST [Concomitant]
     Active Substance: MONTELUKAST SODIUM
  9. LISINOPRIL. [Concomitant]
     Active Substance: LISINOPRIL
  10. DUPIXENT [Suspect]
     Active Substance: DUPILUMAB
     Indication: ASTHMA
     Dosage: ?          OTHER FREQUENCY:EVERY OTHER WEEK;?
     Route: 058
  11. PRENISONE [Concomitant]
     Active Substance: PREDNISONE
  12. LEVOTHYROXINE. [Concomitant]
     Active Substance: LEVOTHYROXINE
  13. JANUVIA [Concomitant]
     Active Substance: SITAGLIPTIN PHOSPHATE
  14. TRIAMCINOLONE CREAM [Concomitant]
     Active Substance: TRIAMCINOLONE
  15. LORATADINE. [Concomitant]
     Active Substance: LORATADINE
  16. VICTOZA [Concomitant]
     Active Substance: LIRAGLUTIDE
  17. FARXIGA [Concomitant]
     Active Substance: DAPAGLIFLOZIN PROPANEDIOL
  18. ALBUTEROL. [Concomitant]
     Active Substance: ALBUTEROL
  19. IPRATROPIUM [Concomitant]
     Active Substance: IPRATROPIUM
  20. OMEPRAZOLE. [Concomitant]
     Active Substance: OMEPRAZOLE

REACTIONS (2)
  - Therapy cessation [None]
  - Peripheral swelling [None]

NARRATIVE: CASE EVENT DATE: 20200828
